FAERS Safety Report 24407627 (Version 2)
Quarter: 2025Q3

REPORT INFORMATION
  Report Type: Spontaneous
  Country: JP (occurrence: JP)
  Receive Date: 20241007
  Receipt Date: 20250810
  Transmission Date: 20251020
  Serious: Yes (Hospitalization)
  Sender: ALEXION PHARMACEUTICALS
  Company Number: JP-ASTRAZENECA-240104813_064320_P_1

PATIENT
  Age: 6 Decade
  Sex: Female

DRUGS (2)
  1. ANDEXXA [Suspect]
     Active Substance: ANDEXANET ALFA
  2. EDOXABAN TOSYLATE [Concomitant]
     Active Substance: EDOXABAN TOSYLATE
     Indication: Cerebral infarction
     Route: 065

REACTIONS (2)
  - Heparin resistance [Unknown]
  - Coagulation time abnormal [Unknown]
